FAERS Safety Report 4763151-8 (Version None)
Quarter: 2005Q3

REPORT INFORMATION
  Report Type: 
  Country: None (occurrence: None)
  Receive Date: 20050831
  Receipt Date: 20050822
  Transmission Date: 20060218
  Serious: Yes (Hospitalization)
  Sender: FDA-Public Use
  Company Number: 2005BH001232

PATIENT
  Age: 47 Year
  Sex: Female

DRUGS (3)
  1. FENTANYL CITRATE [Suspect]
     Indication: ANAESTHESIA
     Dosage: ONCE; IV
     Route: 042
     Dates: start: 20050112, end: 20050112
  2. NEXIUM [Concomitant]
  3. TYLENOL [Concomitant]

REACTIONS (4)
  - DYSPNOEA [None]
  - HYPERVENTILATION [None]
  - PNEUMONITIS [None]
  - PULMONARY FUNCTION TEST ABNORMAL [None]
